FAERS Safety Report 7146526-1 (Version None)
Quarter: 2010Q4

REPORT INFORMATION
  Report Type: 
  Country: None (occurrence: None)
  Receive Date: 20101208
  Receipt Date: 20101125
  Transmission Date: 20110411
  Serious: Yes (Hospitalization, Disabling)
  Sender: FDA-Public Use
  Company Number: HR-MYLANLABS-2010S1021875

PATIENT
  Age: 48 Year
  Sex: Female

DRUGS (9)
  1. IBUPROFEN [Suspect]
     Indication: PYREXIA
     Route: 048
  2. IBUPROFEN [Suspect]
     Indication: DYSURIA
     Route: 048
  3. RANITIDINE [Suspect]
     Indication: PYREXIA
     Route: 048
  4. RANITIDINE [Suspect]
     Indication: DYSURIA
     Route: 048
  5. AMOXICILLIN AND CLAVULANATE POTASSIUM [Concomitant]
     Indication: PYREXIA
     Route: 048
  6. AMOXICILLIN AND CLAVULANATE POTASSIUM [Concomitant]
     Indication: DYSURIA
     Route: 048
  7. PARACETAMOL [Concomitant]
     Indication: PYREXIA
     Route: 048
  8. PARACETAMOL [Concomitant]
     Indication: DYSURIA
     Route: 048
  9. CIPROFLOXACIN [Concomitant]
     Route: 048

REACTIONS (4)
  - DEAFNESS NEUROSENSORY [None]
  - MENINGITIS ASEPTIC [None]
  - TINNITUS [None]
  - VESTIBULAR DISORDER [None]
